FAERS Safety Report 6489080-X (Version None)
Quarter: 2009Q4

REPORT INFORMATION
  Report Type: 
  Country: None (occurrence: None)
  Receive Date: 20091123
  Receipt Date: 20090904
  Transmission Date: 20100525
  Serious: No
  Sender: FDA-Public Use
  Company Number: 8051649

PATIENT
  Age: 14 Year
  Sex: Male
  Weight: 62.1 kg

DRUGS (5)
  1. CIMZIA [Suspect]
     Indication: CROHN'S DISEASE
     Dosage: 400 MG SC
     Route: 058
     Dates: start: 20090624
  2. THERA TEARS [Concomitant]
  3. PREVACID [Concomitant]
  4. NIFEREX [Concomitant]
  5. MULTI-VITAMIN [Concomitant]

REACTIONS (3)
  - CONSTIPATION [None]
  - EYE PAIN [None]
  - HEADACHE [None]
